FAERS Safety Report 7550474-2 (Version None)
Quarter: 2011Q2

REPORT INFORMATION
  Report Type: 
  Country: None (occurrence: None)
  Receive Date: 20110615
  Receipt Date: 20110610
  Transmission Date: 20111010
  Serious: Yes (Death, Other)
  Sender: FDA-Public Use
  Company Number: US-AMGEN-USASP2010000193

PATIENT
  Age: 77 Year
  Sex: Male
  Weight: 51.701 kg

DRUGS (6)
  1. VINCRISTINE [Concomitant]
  2. CYCLOPHOSPHAMIDE [Concomitant]
  3. NPLATE [Suspect]
     Indication: IDIOPATHIC THROMBOCYTOPENIC PURPURA
     Dates: start: 20090908, end: 20100713
  4. PREDNISONE [Concomitant]
  5. IMMUNOGLOBULINS [Concomitant]
     Dosage: UNK
     Route: 042
     Dates: start: 20080208
  6. DOXORUBICIN HCL [Concomitant]

REACTIONS (15)
  - GENERAL PHYSICAL HEALTH DETERIORATION [None]
  - FATIGUE [None]
  - OEDEMA PERIPHERAL [None]
  - WEIGHT DECREASED [None]
  - CARDIAC ARREST [None]
  - SKIN LESION [None]
  - CARDIAC FAILURE CONGESTIVE [None]
  - ASTHENIA [None]
  - ABASIA [None]
  - SKIN MASS [None]
  - CARDIOMYOPATHY [None]
  - DECREASED APPETITE [None]
  - MALNUTRITION [None]
  - EJECTION FRACTION DECREASED [None]
  - DYSPNOEA [None]
